FAERS Safety Report 7514692-1 (Version None)
Quarter: 2011Q2

REPORT INFORMATION
  Report Type: 
  Country: None (occurrence: None)
  Receive Date: 20110601
  Receipt Date: 20110518
  Transmission Date: 20111010
  Serious: Yes (Hospitalization)
  Sender: FDA-Public Use
  Company Number: GB-RANBAXY-2011R1-44777

PATIENT
  Age: 74 Year
  Sex: Female

DRUGS (3)
  1. SIMVASTATIN [Suspect]
     Indication: HYPERTENSION
  2. SIMVASTATIN [Suspect]
     Indication: BLOOD CHOLESTEROL DECREASED
     Dosage: 40 MG, QD
     Route: 065
  3. SIMVASTATIN [Suspect]
     Indication: BLOOD CHOLESTEROL INCREASED
     Dosage: 20 MG, QD
     Route: 065

REACTIONS (5)
  - BLOOD CREATININE INCREASED [None]
  - MYALGIA [None]
  - RHABDOMYOLYSIS [None]
  - CHROMATURIA [None]
  - ALANINE AMINOTRANSFERASE INCREASED [None]
